FAERS Safety Report 4491759-6 (Version None)
Quarter: 2004Q4

REPORT INFORMATION
  Report Type: 
  Country: None (occurrence: None)
  Receive Date: 20041101
  Receipt Date: 20041018
  Transmission Date: 20050328
  Serious: Yes (Death, Other)
  Sender: FDA-Public Use
  Company Number: 2004071878

PATIENT
  Age: 58 Year
  Sex: Male
  Weight: 79.8331 kg

DRUGS (8)
  1. GEODON [Suspect]
     Indication: SCHIZOPHRENIA
     Dosage: 240 MG (2 IN 1 D) UNKNOWN
     Route: 065
     Dates: start: 20031211
  2. BENZTROPINE MESYLATE [Suspect]
     Indication: EXTRAPYRAMIDAL DISORDER
     Dosage: 4 MG (2 MG, 2 IN 1 D), ORAL
     Route: 048
     Dates: start: 20040730
  3. CLOZAPINE [Suspect]
     Indication: SCHIZOAFFECTIVE DISORDER
     Dosage: 475 MG (4 IN 1 D) ORAL
     Route: 048
     Dates: start: 20010417
  4. CLOZAPINE [Suspect]
     Indication: SCHIZOPHRENIA
     Dosage: 475 MG (4 IN 1 D) ORAL
     Route: 048
     Dates: start: 20010417
  5. BISACODYL (BISACODYL) [Concomitant]
  6. MAGNESIUM CITRATE (MAGNESIUM CITRATE) [Concomitant]
  7. MACROGOL (MACROGOL) [Concomitant]
  8. VALPROIC ACID [Concomitant]

REACTIONS (5)
  - CARDIAC ARREST [None]
  - INTESTINAL OBSTRUCTION [None]
  - PNEUMONIA ASPIRATION [None]
  - RESPIRATORY ARREST [None]
  - SEPSIS [None]
